FAERS Safety Report 7627668-0 (Version None)
Quarter: 2011Q3

REPORT INFORMATION
  Report Type: 
  Country: None (occurrence: None)
  Receive Date: 20110721
  Receipt Date: 20110718
  Transmission Date: 20111222
  Serious: No
  Sender: FDA-Public Use
  Company Number: GB-SANOFI-AVENTIS-2011SA045764

PATIENT
  Sex: Female

DRUGS (1)
  1. ARAVA [Suspect]
     Dosage: DURATION: 4-6 WEEKS.
     Route: 065
     Dates: start: 20100801

REACTIONS (1)
  - MATERNAL EXPOSURE DURING PREGNANCY [None]
